FAERS Safety Report 6932963-4 (Version None)
Quarter: 2010Q3

REPORT INFORMATION
  Report Type: 
  Country: None (occurrence: None)
  Receive Date: 20100819
  Receipt Date: 20100811
  Transmission Date: 20110219
  Serious: Yes (Life-Threatening, Hospitalization)
  Sender: FDA-Public Use
  Company Number: US-MERCK-1007USA02909

PATIENT
  Age: 55 Year
  Sex: Male

DRUGS (5)
  1. ZOCOR [Suspect]
     Indication: BLOOD CHOLESTEROL
     Route: 048
     Dates: start: 20060101
  2. ZOCOR [Suspect]
     Route: 048
     Dates: end: 20100721
  3. ZOCOR [Suspect]
     Route: 048
  4. DILTIAZEM HYDROCHLORIDE [Concomitant]
     Route: 065
  5. COUMARIN [Concomitant]
     Route: 065

REACTIONS (6)
  - AMNESIA [None]
  - COMA [None]
  - DRUG INTERACTION [None]
  - MALAISE [None]
  - MUSCULAR WEAKNESS [None]
  - PAIN [None]
